FAERS Safety Report 24141739 (Version 1)
Quarter: 2024Q3

REPORT INFORMATION
  Report Type: Spontaneous
  Country: US (occurrence: None)
  Receive Date: 20240726
  Receipt Date: 20240726
  Transmission Date: 20241017
  Serious: No
  Sender: Public
  Company Number: None

PATIENT
  Sex: Male

DRUGS (1)
  1. BENLYSTA [Suspect]
     Active Substance: BELIMUMAB
     Indication: Systemic lupus erythematosus
     Dosage: 200MG EVERY 7 DAYS UNDER THE SKIN
     Route: 058
     Dates: start: 202406

REACTIONS (3)
  - Dizziness [None]
  - Syncope [None]
  - Drug level above therapeutic [None]
